FAERS Safety Report 4386021-6 (Version None)
Quarter: 2004Q2

REPORT INFORMATION
  Report Type: 
  Country: None (occurrence: None)
  Receive Date: 20040628
  Receipt Date: 20040618
  Transmission Date: 20050107
  Serious: Yes (Hospitalization)
  Sender: FDA-Public Use
  Company Number: NO-MERCK-0406NOR00016

PATIENT
  Age: 84 Year
  Sex: Female

DRUGS (5)
  1. DALTEPARIN SODIUM [Concomitant]
     Indication: THROMBOSIS PROPHYLAXIS
     Route: 058
     Dates: start: 20040602, end: 20040605
  2. VASOTEC [Concomitant]
     Indication: HYPERTENSION
     Route: 048
  3. ESCITALOPRAM OXALATE [Concomitant]
     Indication: DEPRESSION
     Route: 048
  4. METOPROLOL TARTRATE [Concomitant]
     Indication: HYPERTENSION
     Route: 048
  5. VIOXX [Suspect]
     Indication: POST PROCEDURAL PAIN
     Route: 048
     Dates: start: 20040527, end: 20040605

REACTIONS (3)
  - DUODENAL ULCER PERFORATION [None]
  - HAEMATEMESIS [None]
  - PERITONITIS [None]
